FAERS Safety Report 13686401 (Version 1)
Quarter: 2017Q2

REPORT INFORMATION
  Report Type: Spontaneous
  Country: US (occurrence: US)
  Receive Date: 20170623
  Receipt Date: 20170623
  Transmission Date: 20170830
  Serious: Yes (Hospitalization, Other)
  Sender: FDA-Public Use
  Company Number: US-SA-2017SA101195

PATIENT
  Age: 72 Year
  Sex: Male

DRUGS (9)
  1. ALIROCUMAB PREFILLED PEN [Concomitant]
     Active Substance: ALIROCUMAB
     Indication: HYPERLIPIDAEMIA
     Dates: start: 20160531
  2. LISINOPRIL. [Concomitant]
     Active Substance: LISINOPRIL
  3. WELCHOL [Concomitant]
     Active Substance: COLESEVELAM HYDROCHLORIDE
  4. PSYLLIUM [Concomitant]
     Active Substance: PLANTAGO SEED
  5. COREG [Concomitant]
     Active Substance: CARVEDILOL
  6. ASPIRIN. [Concomitant]
     Active Substance: ASPIRIN
  7. MIRALAX [Concomitant]
     Active Substance: POLYETHYLENE GLYCOL 3350
  8. NIASPAN [Concomitant]
     Active Substance: NIACIN
  9. PRALUENT [Suspect]
     Active Substance: ALIROCUMAB
     Indication: HYPERLIPIDAEMIA
     Route: 058
     Dates: start: 20160531

REACTIONS (2)
  - Gallbladder disorder [Unknown]
  - Myocardial infarction [Unknown]
